FAERS Safety Report 13001599 (Version 1)
Quarter: 2016Q4

REPORT INFORMATION
  Report Type: Spontaneous
  Country: US (occurrence: US)
  Receive Date: 20161206
  Receipt Date: 20161206
  Transmission Date: 20170207
  Serious: No
  Sender: FDA-Public Use
  Company Number: US-MYLANLABS-2016M1037426

PATIENT
  Age: 69 Year
  Sex: Male
  Weight: 92.52 kg

DRUGS (2)
  1. LIDOCAINE PATCH [Suspect]
     Active Substance: LIDOCAINE
     Indication: ARTHRALGIA
     Dosage: 1 DF, PRN, CHANGE 12HR ON / 12HR OFF
     Route: 003
     Dates: start: 201607
  2. LIDOCAINE PATCH [Suspect]
     Active Substance: LIDOCAINE
     Indication: BACK PAIN

REACTIONS (4)
  - Product adhesion issue [Not Recovered/Not Resolved]
  - No adverse event [Not Recovered/Not Resolved]
  - Product quality issue [Not Recovered/Not Resolved]
  - Expired product administered [Not Recovered/Not Resolved]

NARRATIVE: CASE EVENT DATE: 201607
